FAERS Safety Report 11404737 (Version 1)
Quarter: 2015Q3

REPORT INFORMATION
  Report Type: Spontaneous
  Country: US (occurrence: US)
  Receive Date: 20150821
  Receipt Date: 20150821
  Transmission Date: 20151125
  Serious: No
  Sender: FDA-Public Use
  Company Number: US-BAYER-2015-399780

PATIENT
  Sex: Female

DRUGS (1)
  1. AVELOX [Suspect]
     Active Substance: MOXIFLOXACIN HYDROCHLORIDE
     Dosage: UNK
     Dates: start: 2001, end: 2007

REACTIONS (10)
  - Burning sensation [None]
  - Injury [None]
  - Anxiety [None]
  - Anhedonia [None]
  - Pain [None]
  - Fear [None]
  - Pain in extremity [None]
  - Quality of life decreased [None]
  - Emotional distress [None]
  - Neuropathy peripheral [None]
